FAERS Safety Report 8977593 (Version 2)
Quarter: 2013Q1

REPORT INFORMATION
  Report Type: Spontaneous
  Country: US (occurrence: US)
  Receive Date: 20121220
  Receipt Date: 20130114
  Transmission Date: 20140127
  Serious: Yes (Disabling)
  Sender: FDA-Public Use
  Company Number: US-GLAXOSMITHKLINE-A1005574A

PATIENT
  Age: 67 Year
  Sex: Female

DRUGS (10)
  1. VOTRIENT [Suspect]
     Indication: SARCOMA
     Dosage: 400MG PER DAY
     Route: 048
     Dates: start: 20120314, end: 20121204
  2. MOTRIN [Concomitant]
  3. HYDROCHLOROTHIAZIDE [Concomitant]
  4. COZAAR [Concomitant]
  5. FLONASE [Concomitant]
  6. ZOFRAN [Concomitant]
  7. LASIX [Concomitant]
  8. VITAMIN C [Concomitant]
  9. VITAMIN D2 [Concomitant]
  10. MAGNESIUM [Concomitant]

REACTIONS (7)
  - Hepatotoxicity [Recovering/Resolving]
  - Headache [Recovering/Resolving]
  - Hypertension [Recovering/Resolving]
  - Myalgia [Recovering/Resolving]
  - Movement disorder [Unknown]
  - Hepatic enzyme increased [Unknown]
  - Adverse event [Unknown]
